FAERS Safety Report 13675604 (Version 3)
Quarter: 2017Q3

REPORT INFORMATION
  Report Type: Spontaneous
  Country: KR (occurrence: KR)
  Receive Date: 20170621
  Receipt Date: 20170825
  Transmission Date: 20171127
  Serious: No
  Sender: FDA-Public Use
  Company Number: KR-009507513-1701KOR011031

PATIENT
  Age: 49 Year
  Sex: Male
  Weight: 82.1 kg

DRUGS (57)
  1. CISPLATIN. [Concomitant]
     Active Substance: CISPLATIN
     Dosage: STRENGTH: 50MG/100ML, 144 MG, ONCE,  CYCLE: 2
     Route: 042
     Dates: start: 20161115, end: 20161115
  2. FLUOROURACIL. [Concomitant]
     Active Substance: FLUOROURACIL
     Indication: SALIVARY GLAND CANCER
     Dosage: STRENGTH: 1000MG/20ML, 1960 MG, QD, CYCLE: 1
     Route: 042
     Dates: start: 20161025, end: 20161028
  3. DEXAMETHASONE. [Concomitant]
     Active Substance: DEXAMETHASONE
     Dosage: 3.75 MG, BID
     Route: 048
     Dates: start: 20161116, end: 20161118
  4. DEXAMETHASONE. [Concomitant]
     Active Substance: DEXAMETHASONE
     Dosage: 3.75 MG, BID
     Route: 048
     Dates: start: 20170118, end: 20170120
  5. ALOXI [Concomitant]
     Active Substance: PALONOSETRON HYDROCHLORIDE
     Dosage: 0.25MG, ONCE
     Route: 042
     Dates: start: 20161206, end: 20161206
  6. ALOXI [Concomitant]
     Active Substance: PALONOSETRON HYDROCHLORIDE
     Dosage: 0.25MG, ONCE
     Route: 042
     Dates: start: 20161227, end: 20161227
  7. LASIX [Concomitant]
     Active Substance: FUROSEMIDE
     Indication: PROPHYLAXIS
     Dosage: STRENGTH: 20MG/2ML, 20 MG, ONCE
     Route: 042
     Dates: start: 20161025, end: 20161025
  8. LASIX [Concomitant]
     Active Substance: FUROSEMIDE
     Dosage: STRENGTH: 20MG/2ML, 20 MG, ONCE
     Route: 042
     Dates: start: 20161115, end: 20161115
  9. LASIX [Concomitant]
     Active Substance: FUROSEMIDE
     Dosage: STRENGTH: 20MG/2ML, 20 MG, ONCE
     Route: 042
     Dates: start: 20170117, end: 20170117
  10. MANNITOL. [Concomitant]
     Active Substance: MANNITOL
     Indication: PROPHYLAXIS
     Dosage: STRENGTH: 15% 100ML, 100 ML, ONCE
     Route: 042
     Dates: start: 20161025, end: 20161025
  11. MANNITOL. [Concomitant]
     Active Substance: MANNITOL
     Dosage: STRENGTH: 15% 100ML, 100 ML, ONCE
     Route: 042
     Dates: start: 20161115, end: 20161115
  12. MANNITOL. [Concomitant]
     Active Substance: MANNITOL
     Dosage: STRENGTH: 15% 100ML, 100 ML, ONCE
     Route: 042
     Dates: start: 20161206, end: 20161206
  13. MANNITOL. [Concomitant]
     Active Substance: MANNITOL
     Dosage: STRENGTH: 15% 100ML, 100 ML, ONCE
     Route: 042
     Dates: start: 20170117, end: 20170117
  14. MAGMIL [Concomitant]
     Active Substance: MAGNESIUM HYDROXIDE
     Dosage: 2 TABLETS, BID
     Route: 048
     Dates: start: 20170207
  15. EMEND (FOSAPREPITANT DIMEGLUMINE) [Suspect]
     Active Substance: FOSAPREPITANT DIMEGLUMINE
     Dosage: 150 MG, ONCE
     Route: 042
     Dates: start: 20170207, end: 20170207
  16. CISPLATIN. [Concomitant]
     Active Substance: CISPLATIN
     Dosage: STRENGTH: 50MG/100ML, 145.5 MG, ONCE,  CYCLE: 3
     Route: 042
     Dates: start: 20161206, end: 20161206
  17. FLUOROURACIL. [Concomitant]
     Active Substance: FLUOROURACIL
     Dosage: STRENGTH: 1000MG/20ML, 1940 MG, QD, CYCLE: 3
     Route: 042
     Dates: start: 20161206, end: 20161208
  18. FLUOROURACIL. [Concomitant]
     Active Substance: FLUOROURACIL
     Dosage: STRENGTH: 1000MG/20ML, 1930 MG, QD, CYCLE: 4
     Route: 042
     Dates: start: 20161227, end: 20161229
  19. DEXAMETHASONE SODIUM PHOSPHATE. [Concomitant]
     Active Substance: DEXAMETHASONE SODIUM PHOSPHATE
     Indication: PROPHYLAXIS OF NAUSEA AND VOMITING
     Dosage: 10 MG, ONCE
     Route: 042
     Dates: start: 20161025, end: 20161025
  20. DEXAMETHASONE. [Concomitant]
     Active Substance: DEXAMETHASONE
     Dosage: 3.75 MG, BID
     Route: 048
     Dates: start: 20161207, end: 20161209
  21. ALOXI [Concomitant]
     Active Substance: PALONOSETRON HYDROCHLORIDE
     Dosage: 0.25MG, ONCE
     Route: 042
     Dates: start: 20170207, end: 20170207
  22. DUPHALAC [Concomitant]
     Active Substance: LACTULOSE
     Dosage: 30 ML, ONCE
     Route: 048
     Dates: start: 20161116, end: 20161116
  23. HEXIDINE [Concomitant]
     Indication: PROPHYLAXIS
     Dosage: 100 ML, QD
     Dates: start: 20161115, end: 20170203
  24. DEXAMETHASONE SODIUM PHOSPHATE. [Concomitant]
     Active Substance: DEXAMETHASONE SODIUM PHOSPHATE
     Dosage: 10 MG, ONCE
     Route: 042
     Dates: start: 20170117, end: 20170117
  25. LASIX [Concomitant]
     Active Substance: FUROSEMIDE
     Dosage: STRENGTH: 20MG/2ML, 20 MG, ONCE
     Route: 042
     Dates: start: 20161206, end: 20161206
  26. LASIX [Concomitant]
     Active Substance: FUROSEMIDE
     Dosage: STRENGTH: 20MG/2ML, 20 MG, ONCE
     Route: 042
     Dates: start: 20161227, end: 20161227
  27. MANNITOL. [Concomitant]
     Active Substance: MANNITOL
     Dosage: STRENGTH: 15% 100ML, 100 ML, ONCE
     Route: 042
     Dates: start: 20161227, end: 20161227
  28. MECKOOL [Concomitant]
     Indication: PROPHYLAXIS OF NAUSEA AND VOMITING
     Dosage: STRENGTH: 4.231MG/ML, 10MG, FREQUENCY: 1
     Route: 042
     Dates: start: 20161026, end: 20161026
  29. CISPLATIN. [Concomitant]
     Active Substance: CISPLATIN
     Indication: SALIVARY GLAND CANCER
     Dosage: STRENGTH: 50MG/100ML, 147 MG, ONCE,  CYCLE: 1
     Route: 042
     Dates: start: 20161025, end: 20161025
  30. DEXAMETHASONE. [Concomitant]
     Active Substance: DEXAMETHASONE
     Dosage: 3.75 MG, BID
     Route: 048
     Dates: start: 20161228, end: 20161230
  31. ALOXI [Concomitant]
     Active Substance: PALONOSETRON HYDROCHLORIDE
     Indication: PROPHYLAXIS OF NAUSEA AND VOMITING
     Dosage: 0.25MG, ONCE
     Route: 042
     Dates: start: 20161025, end: 20161025
  32. MAGMIL [Concomitant]
     Active Substance: MAGNESIUM HYDROXIDE
     Indication: CONSTIPATION PROPHYLAXIS
     Dosage: 2 TABLETS, BID
     Route: 048
     Dates: start: 20161027, end: 20161028
  33. MAGMIL [Concomitant]
     Active Substance: MAGNESIUM HYDROXIDE
     Dosage: 2 TABLETS, BID
     Route: 048
     Dates: start: 20161111
  34. DEXAMETHASONE. [Concomitant]
     Active Substance: DEXAMETHASONE
     Dosage: 3.75 MG, BID
     Route: 048
     Dates: start: 20170208, end: 20170210
  35. ALOXI [Concomitant]
     Active Substance: PALONOSETRON HYDROCHLORIDE
     Dosage: 0.25MG, ONCE
     Route: 042
     Dates: start: 20161115, end: 20161115
  36. ALOXI [Concomitant]
     Active Substance: PALONOSETRON HYDROCHLORIDE
     Dosage: 0.25MG, ONCE
     Route: 042
     Dates: start: 20170117, end: 20170117
  37. EMEND (FOSAPREPITANT DIMEGLUMINE) [Suspect]
     Active Substance: FOSAPREPITANT DIMEGLUMINE
     Dosage: 150 MG, ONCE
     Route: 042
     Dates: start: 20161227, end: 20161227
  38. EMEND (FOSAPREPITANT DIMEGLUMINE) [Suspect]
     Active Substance: FOSAPREPITANT DIMEGLUMINE
     Dosage: 150 MG, ONCE
     Route: 042
     Dates: start: 20170117, end: 20170117
  39. CISPLATIN. [Concomitant]
     Active Substance: CISPLATIN
     Dosage: STRENGTH: 50MG/100ML, 144.7 MG, ONCE,  CYCLE: 4
     Route: 042
     Dates: start: 20161227, end: 20161227
  40. CISPLATIN. [Concomitant]
     Active Substance: CISPLATIN
     Dosage: STRENGTH: 50MG/100ML, 142.5 MG, ONCE,  CYCLE: 5
     Route: 042
     Dates: start: 20170117, end: 20170117
  41. UFT [Concomitant]
     Active Substance: TEGAFUR\URACIL
     Indication: SALIVARY GLAND CANCER
     Dosage: 1 G, BID, CYCLE: 0
     Route: 048
     Dates: start: 20161012, end: 20161101
  42. DEXAMETHASONE SODIUM PHOSPHATE. [Concomitant]
     Active Substance: DEXAMETHASONE SODIUM PHOSPHATE
     Dosage: 10 MG, ONCE
     Route: 042
     Dates: start: 20161115, end: 20161115
  43. DEXAMETHASONE. [Concomitant]
     Active Substance: DEXAMETHASONE
     Indication: PROPHYLAXIS OF NAUSEA AND VOMITING
     Dosage: 3.75 MG, BID
     Route: 048
     Dates: start: 20161026, end: 20161028
  44. LASIX [Concomitant]
     Active Substance: FUROSEMIDE
     Dosage: STRENGTH: 20MG/2ML, 20 MG, ONCE
     Route: 042
     Dates: start: 20170207, end: 20170207
  45. EMEND (FOSAPREPITANT DIMEGLUMINE) [Suspect]
     Active Substance: FOSAPREPITANT DIMEGLUMINE
     Indication: PROPHYLAXIS OF NAUSEA AND VOMITING
     Dosage: 150 MG, ONCE
     Route: 042
     Dates: start: 20161025, end: 20161025
  46. EMEND (FOSAPREPITANT DIMEGLUMINE) [Suspect]
     Active Substance: FOSAPREPITANT DIMEGLUMINE
     Dosage: 150 MG, ONCE
     Route: 042
     Dates: start: 20161206, end: 20161206
  47. CISPLATIN. [Concomitant]
     Active Substance: CISPLATIN
     Dosage: STRENGTH: 50MG/100ML, 143.25 MG, ONCE,  CYCLE: 6
     Route: 042
     Dates: start: 20170207, end: 20170207
  48. FLUOROURACIL. [Concomitant]
     Active Substance: FLUOROURACIL
     Dosage: STRENGTH: 1000MG/20ML, 1920 MG, QD, CYCLE: 2
     Route: 042
     Dates: start: 20161115, end: 20161117
  49. FLUOROURACIL. [Concomitant]
     Active Substance: FLUOROURACIL
     Dosage: STRENGTH: 1000MG/20ML, 1900 MG, QD, CYCLE: 5
     Route: 042
     Dates: start: 20170117, end: 20170119
  50. FLUOROURACIL. [Concomitant]
     Active Substance: FLUOROURACIL
     Dosage: STRENGTH: 1000MG/20ML, 1910 MG, QD, CYCLE: 6
     Route: 042
     Dates: start: 20170207, end: 20170210
  51. EMEND (FOSAPREPITANT DIMEGLUMINE) [Suspect]
     Active Substance: FOSAPREPITANT DIMEGLUMINE
     Dosage: 150 MG, ONCE
     Route: 042
     Dates: start: 20161115, end: 20161115
  52. DEXAMETHASONE SODIUM PHOSPHATE. [Concomitant]
     Active Substance: DEXAMETHASONE SODIUM PHOSPHATE
     Dosage: 10 MG, ONCE
     Route: 042
     Dates: start: 20161206, end: 20161206
  53. DEXAMETHASONE SODIUM PHOSPHATE. [Concomitant]
     Active Substance: DEXAMETHASONE SODIUM PHOSPHATE
     Dosage: 10 MG, ONCE
     Route: 042
     Dates: start: 20161227, end: 20161227
  54. DEXAMETHASONE SODIUM PHOSPHATE. [Concomitant]
     Active Substance: DEXAMETHASONE SODIUM PHOSPHATE
     Dosage: 10 MG, ONCE
     Route: 042
     Dates: start: 20170207, end: 20170207
  55. MANNITOL. [Concomitant]
     Active Substance: MANNITOL
     Dosage: STRENGTH: 15% 100ML, 100 ML, ONCE
     Route: 042
     Dates: start: 20170207, end: 20170207
  56. DUPHALAC [Concomitant]
     Active Substance: LACTULOSE
     Indication: CONSTIPATION PROPHYLAXIS
     Dosage: 30 ML, ONCE
     Route: 048
     Dates: start: 20161027, end: 20161027
  57. LAFUTIDINE [Concomitant]
     Active Substance: LAFUTIDINE
     Indication: PROPHYLAXIS
     Dosage: 10MG (1 TABLET), FREQUENCY: 2
     Route: 048
     Dates: start: 20161012

REACTIONS (9)
  - Chest pain [Recovered/Resolved]
  - Abdominal pain [Recovered/Resolved]
  - Stomatitis [Recovered/Resolved]
  - Drug ineffective [Unknown]
  - Nausea [Recovered/Resolved]
  - Nausea [Recovered/Resolved]
  - Pyrexia [Recovered/Resolved]
  - Cough [Recovered/Resolved]
  - Constipation [Recovered/Resolved]

NARRATIVE: CASE EVENT DATE: 20161102
